FAERS Safety Report 9495877 (Version 1)
Quarter: 2013Q3

REPORT INFORMATION
  Report Type: Report from Study
  Country: DE (occurrence: DE)
  Receive Date: 20130903
  Receipt Date: 20130903
  Transmission Date: 20140515
  Serious: Yes (Other)
  Sender: FDA-Public Use
  Company Number: DE-B.I. PHARMACEUTICALS,INC./RIDGEFIELD-2013-BI-26851DE

PATIENT
  Age: 21 Year
  Sex: Female
  Weight: 70 kg

DRUGS (4)
  1. CATAPRESAN [Suspect]
     Route: 048
     Dates: start: 20130828
  2. DOMIONAL 80 [Suspect]
     Route: 048
     Dates: start: 20130828
  3. TRUXAL [Suspect]
     Route: 048
     Dates: start: 20130828
  4. CHLORPROTHIXENE [Suspect]
     Route: 048
     Dates: start: 20130828

REACTIONS (4)
  - Suicide attempt [Unknown]
  - Sopor [Unknown]
  - Electrocardiogram QT prolonged [Unknown]
  - Atrioventricular block complete [Unknown]
